FAERS Safety Report 4709962-6 (Version None)
Quarter: 2005Q3

REPORT INFORMATION
  Report Type: 
  Country: None (occurrence: None)
  Receive Date: 20050706
  Receipt Date: 20050701
  Transmission Date: 20060218
  Serious: Yes (Death)
  Sender: FDA-Public Use
  Company Number: 200510317BYL

PATIENT
  Age: 90 Year
  Sex: Female

DRUGS (4)
  1. CIPRO IV [Suspect]
     Indication: PNEUMONIA
     Dosage: 600 MG, TOTAL DAILY, INTRAVENOUS
     Route: 042
  2. CEPHEM DERIVATIVES AND ANTIBIOTIC PREPARATIONS [Concomitant]
  3. GASTER [Concomitant]
  4. TRANSFUSION [Concomitant]

REACTIONS (1)
  - RENAL FAILURE ACUTE [None]
